FAERS Safety Report 4849266-4 (Version None)
Quarter: 2005Q4

REPORT INFORMATION
  Report Type: 
  Country: None (occurrence: None)
  Receive Date: 20051207
  Receipt Date: 20051128
  Transmission Date: 20060501
  Serious: Yes (Hospitalization)
  Sender: FDA-Public Use
  Company Number: KII-2005-0019964

PATIENT
  Age: 7 Year
  Sex: Female

DRUGS (6)
  1. MORPHINE SULFATE [Suspect]
     Indication: ACCIDENTAL DRUG INTAKE BY CHILD
     Dosage: 2 TABLET, SINGLE, ORAL
     Route: 048
     Dates: start: 20051103, end: 20051103
  2. ANTIEPILEPTICS () [Suspect]
     Indication: ACCIDENTAL DRUG INTAKE BY CHILD
     Dosage: 1 TABLET, SINGLE, ORAL
     Route: 048
     Dates: start: 20051103, end: 20051103
  3. IBUPROFEN [Suspect]
     Indication: ACCIDENTAL DRUG INTAKE BY CHILD
     Dosage: 4 TABLET, SINGLE, ORAL
     Route: 048
     Dates: start: 20051103, end: 20051103
  4. CAFFEINE (CAFFEINE) [Suspect]
     Indication: ACCIDENTAL DRUG INTAKE BY CHILD
     Dosage: 1 TABLET, SINGLE, ORAL
     Route: 048
     Dates: start: 20051103, end: 20051103
  5. DIPHENHYDRAMINE HCL [Suspect]
     Indication: ACCIDENTAL DRUG INTAKE BY CHILD
     Dosage: 1 TABLET, SINGLE, ORAL
     Route: 048
     Dates: start: 20051103, end: 20051103
  6. PREDNISONE [Suspect]
     Indication: ACCIDENTAL DRUG INTAKE BY CHILD
     Dosage: SINGLE, ORAL
     Route: 048
     Dates: start: 20051103, end: 20051103

REACTIONS (2)
  - ACCIDENTAL DRUG INTAKE BY CHILD [None]
  - SOMNOLENCE [None]
